FAERS Safety Report 13615623 (Version 2)
Quarter: 2017Q2

REPORT INFORMATION
  Report Type: Spontaneous
  Country: US (occurrence: US)
  Receive Date: 20170606
  Receipt Date: 20170630
  Transmission Date: 20170830
  Serious: No
  Sender: FDA-Public Use
  Company Number: US-PFIZER INC-2017244660

PATIENT
  Age: 48 Year
  Sex: Female

DRUGS (2)
  1. FOLATE [Suspect]
     Active Substance: FOLATE SODIUM
     Dosage: 1 MG, 1X/DAY
     Route: 048
  2. METHOTREXATE SODIUM. [Suspect]
     Active Substance: METHOTREXATE SODIUM
     Dosage: 15 MG, WEEKLY
     Route: 048

REACTIONS (1)
  - Hepatic enzyme increased [Recovering/Resolving]
